FAERS Safety Report 13996943 (Version 1)
Quarter: 2017Q3

REPORT INFORMATION
  Report Type: Spontaneous
  Country: JP (occurrence: JP)
  Receive Date: 20170921
  Receipt Date: 20170921
  Transmission Date: 20171128
  Serious: Yes (Hospitalization)
  Sender: FDA-Public Use
  Company Number: JP-ASTRAZENECA-2017SE83741

PATIENT
  Age: 78 Year
  Sex: Female

DRUGS (1)
  1. OMEPRAL [Suspect]
     Active Substance: OMEPRAZOLE
     Dosage: DOSE UNKNOWN
     Route: 048

REACTIONS (4)
  - Hypokalaemia [Recovered/Resolved]
  - Hypocalcaemia [Recovered/Resolved]
  - Hypomagnesaemia [Unknown]
  - Melaena [Unknown]

NARRATIVE: CASE EVENT DATE: 201708
